FAERS Safety Report 5351128-3 (Version None)
Quarter: 2007Q2

REPORT INFORMATION
  Report Type: 
  Country: None (occurrence: None)
  Receive Date: 20070608
  Receipt Date: 20070529
  Transmission Date: 20071010
  Serious: Yes (Hospitalization)
  Sender: FDA-Public Use
  Company Number: JP-PFIZER INC-2007034663

PATIENT
  Sex: Female

DRUGS (4)
  1. LIPITOR [Suspect]
     Indication: HYPERLIPIDAEMIA
     Dosage: DAILY DOSE:10MG
     Route: 048
     Dates: start: 20070402, end: 20070420
  2. GLYCEOL [Concomitant]
     Indication: INTRACRANIAL PRESSURE INCREASED
     Dosage: DAILY DOSE:400ML
     Dates: start: 20070331, end: 20070420
  3. RINDERON [Concomitant]
     Indication: INTRACRANIAL PRESSURE INCREASED
     Dosage: DAILY DOSE:4MG
     Dates: start: 20070331, end: 20070420
  4. MAGNESIUM OXIDE [Concomitant]
     Indication: CONSTIPATION
     Dosage: DAILY DOSE:990MG
     Route: 048
     Dates: start: 20070331, end: 20070420

REACTIONS (2)
  - LIVER DISORDER [None]
  - PANCREATITIS ACUTE [None]
